FAERS Safety Report 4596873-2 (Version None)
Quarter: 2005Q1

REPORT INFORMATION
  Report Type: 
  Country: None (occurrence: None)
  Receive Date: 20050228
  Receipt Date: 20050214
  Transmission Date: 20050727
  Serious: Yes (Hospitalization, Other)
  Sender: FDA-Public Use
  Company Number: US-2004-034654

PATIENT
  Age: 23 Year
  Sex: Female
  Weight: 69.8 kg

DRUGS (1)
  1. MIRENA [Suspect]
     Indication: CONTRACEPTION
     Dosage: 20 UG/DAY, CONT, INTRA-UTERINE
     Route: 015
     Dates: start: 20020701, end: 20041026

REACTIONS (5)
  - ABORTION MISSED [None]
  - ANAEMIA [None]
  - PREGNANCY WITH CONTRACEPTIVE DEVICE [None]
  - ULTRASOUND ANTENATAL SCREEN ABNORMAL [None]
  - UTERINE HAEMORRHAGE [None]
